FAERS Safety Report 16423088 (Version 1)
Quarter: 2019Q2

REPORT INFORMATION
  Report Type: Report from Study
  Country: None (occurrence: CA)
  Receive Date: 20190612
  Receipt Date: 20190612
  Transmission Date: 20190711
  Serious: Yes (Hospitalization, Other)
  Sender: FDA-Public Use
  Company Number: CA-ABBVIE-19K-028-2610825-00

PATIENT
  Sex: Male
  Weight: 60.9 kg

DRUGS (1)
  1. HUMIRA [Suspect]
     Active Substance: ADALIMUMAB
     Indication: CROHN^S DISEASE
     Route: 058
     Dates: start: 20180926, end: 201905

REACTIONS (5)
  - Weight increased [Unknown]
  - Injection site pain [Not Recovered/Not Resolved]
  - Arthralgia [Recovering/Resolving]
  - Colectomy [Unknown]
  - Abscess intestinal [Recovering/Resolving]

NARRATIVE: CASE EVENT DATE: 2018
